FAERS Safety Report 8698050 (Version 2)
Quarter: 2013Q4

REPORT INFORMATION
  Report Type: Spontaneous
  Country: US (occurrence: US)
  Receive Date: 20120802
  Receipt Date: 20131101
  Transmission Date: 20140711
  Serious: Yes (Hospitalization)
  Sender: FDA-Public Use
  Company Number: US-009507513-1207USA009885

PATIENT
  Sex: 0

DRUGS (9)
  1. PEPCID [Suspect]
     Route: 048
  2. VANCOMYCIN [Suspect]
     Route: 042
  3. LIQUAEMIN [Suspect]
  4. NITRO-DUR [Suspect]
  5. ASPIRIN [Suspect]
  6. PIPERACILLIN SODIUM (+) TAZOBACTAM SODIUM [Suspect]
  7. ZOCOR [Suspect]
     Route: 048
  8. MEROPENEM [Suspect]
  9. CEFEPIME [Suspect]

REACTIONS (1)
  - Thrombocytopenia [Unknown]
